FAERS Safety Report 8041607-2 (Version None)
Quarter: 2012Q1

REPORT INFORMATION
  Report Type: 
  Country: None (occurrence: None)
  Receive Date: 20120112
  Receipt Date: 20120103
  Transmission Date: 20120608
  Serious: Yes (Hospitalization, Other)
  Sender: FDA-Public Use
  Company Number: US-BAYER-2011-080869

PATIENT
  Age: 15 Year
  Sex: Female
  Weight: 67.8 kg

DRUGS (7)
  1. YAZ [Suspect]
     Dosage: UNK
     Dates: start: 20080401, end: 20080701
  2. PANTOPRAZOLE [Concomitant]
     Dosage: 40 MG, PRN
  3. IBUPROFEN [Concomitant]
     Dosage: 600 MG, TID
     Route: 048
  4. NASONEX [Concomitant]
     Dosage: 50 MCG/24HR, PRN
     Route: 045
     Dates: start: 20080417
  5. SINGULAIR [Concomitant]
     Dosage: 10 MG, PRN
  6. AMOXICILLIN [Concomitant]
     Dosage: 500 MG, TID
     Route: 048
     Dates: start: 20080417, end: 20080401
  7. FEXOFENADINE [Concomitant]
     Dosage: 150 MG, UNK
     Route: 048

REACTIONS (9)
  - ANXIETY [None]
  - VISION BLURRED [None]
  - GENERAL PHYSICAL HEALTH DETERIORATION [None]
  - HEADACHE [None]
  - INJURY [None]
  - EMOTIONAL DISTRESS [None]
  - EYE PAIN [None]
  - ISCHAEMIC STROKE [None]
  - PAIN [None]
